FAERS Safety Report 9027907 (Version 2)
Quarter: 2014Q1

REPORT INFORMATION
  Report Type: Spontaneous
  Country: DE (occurrence: DE)
  Receive Date: 20130124
  Receipt Date: 20140130
  Transmission Date: 20141002
  Serious: Yes (Hospitalization)
  Sender: FDA-Public Use
  Company Number: DE-AMGEN-DEUSP2013003778

PATIENT
  Sex: Female

DRUGS (2)
  1. XGEVA [Suspect]
     Indication: METASTASES TO BONE
     Dosage: 120 MG/ 1 VIAL
     Route: 065
  2. CAELYX [Concomitant]
     Indication: METASTASES TO BONE

REACTIONS (2)
  - Vasculitis [Unknown]
  - Dermatitis allergic [Unknown]
